FAERS Safety Report 25012063 (Version 1)
Quarter: 2025Q1

REPORT INFORMATION
  Report Type: Spontaneous
  Country: JP (occurrence: JP)
  Receive Date: 20250226
  Receipt Date: 20250226
  Transmission Date: 20250409
  Serious: Yes (Death)
  Sender: Alora Pharma
  Company Number: JP-OSMOTICA PHARMACEUTICALS-2025ALO00069

PATIENT
  Age: 80 Year
  Sex: Male
  Weight: 49.2 kg

DRUGS (10)
  1. NIFEDIPINE [Suspect]
     Active Substance: NIFEDIPINE
     Route: 048
  2. NIFEDIPINE [Suspect]
     Active Substance: NIFEDIPINE
     Route: 048
  3. AZILSARTAN KAMEDOXOMIL [Suspect]
     Active Substance: AZILSARTAN KAMEDOXOMIL
     Route: 048
  4. AZILSARTAN KAMEDOXOMIL [Suspect]
     Active Substance: AZILSARTAN KAMEDOXOMIL
     Route: 048
  5. AZILSARTAN KAMEDOXOMIL [Suspect]
     Active Substance: AZILSARTAN KAMEDOXOMIL
     Route: 048
  6. AZILSARTAN KAMEDOXOMIL [Suspect]
     Active Substance: AZILSARTAN KAMEDOXOMIL
     Route: 048
  7. CILOSTAZOL [Suspect]
     Active Substance: CILOSTAZOL
     Route: 048
  8. CILOSTAZOL [Suspect]
     Active Substance: CILOSTAZOL
     Route: 048
  9. ATORVASTATIN [Suspect]
     Active Substance: ATORVASTATIN
     Route: 048
  10. ATORVASTATIN [Suspect]
     Active Substance: ATORVASTATIN
     Route: 048

REACTIONS (3)
  - Intestinal ischaemia [Fatal]
  - Overdose [Fatal]
  - Hypotension [Fatal]
